FAERS Safety Report 8935924 (Version 2)
Quarter: 2013Q1

REPORT INFORMATION
  Report Type: Spontaneous
  Country: US (occurrence: US)
  Receive Date: 20121130
  Receipt Date: 20130228
  Transmission Date: 20140127
  Serious: No
  Sender: FDA-Public Use
  Company Number: US-ABBOTT-12P-163-0993039-00

PATIENT
  Sex: Male
  Weight: 83.99 kg

DRUGS (2)
  1. ANDROGEL [Suspect]
     Indication: PRODUCT USED FOR UNKNOWN INDICATION
     Dosage: PUMP
     Route: 061
     Dates: start: 201204
  2. ANDROGEL [Suspect]
     Dosage: PUMP
     Route: 061

REACTIONS (3)
  - Application site erosion [Unknown]
  - Rash pruritic [Unknown]
  - Dry skin [Unknown]
